FAERS Safety Report 8978049 (Version 2)
Quarter: 2012Q4

REPORT INFORMATION
  Report Type: Spontaneous
  Country: IN (occurrence: None)
  Receive Date: 20120820
  Receipt Date: 20120914
  Transmission Date: 20130627
  Serious: Yes (Other)
  Sender: FDA-Public Use
  Company Number: 217989

PATIENT
  Age: 55 Year
  Sex: Female
  Weight: 50 kg

DRUGS (3)
  1. INNOHEP [Suspect]
     Indication: DVT
     Route: 058
     Dates: start: 20120224, end: 20120627
  2. LACTULOSE SOLUTION (LACTULOSE) [Concomitant]
  3. ARISTOZYME SYRUP (DIASTASE) (SYRUP) [Concomitant]

REACTIONS (5)
  - Blood creatinine increased [None]
  - Glomerular filtration rate decreased [None]
  - Blood urea increased [None]
  - Haemoglobin decreased [None]
  - Platelet count decreased [None]
